FAERS Safety Report 5170238-7 (Version None)
Quarter: 2006Q4

REPORT INFORMATION
  Report Type: 
  Country: None (occurrence: None)
  Receive Date: 20061204
  Receipt Date: 20061122
  Transmission Date: 20070319
  Serious: Yes (Other)
  Sender: FDA-Public Use
  Company Number: 2006145584

PATIENT
  Age: 55 Year
  Sex: Female

DRUGS (4)
  1. SOLU-MEDROL [Suspect]
     Indication: OPTIC NEURITIS RETROBULBAR
     Dosage: 1 GRAM, INTRAVENOUS
     Route: 042
     Dates: start: 20060210
  2. FAMOTIDINE [Concomitant]
  3. ALENDRONATE SODIUM [Concomitant]
  4. REBAMIPIDE [Concomitant]

REACTIONS (8)
  - ALANINE AMINOTRANSFERASE INCREASED [None]
  - ASPARTATE AMINOTRANSFERASE INCREASED [None]
  - BLOOD LACTATE DEHYDROGENASE INCREASED [None]
  - DIZZINESS [None]
  - HEADACHE [None]
  - LIVER DISORDER [None]
  - PAPILLOEDEMA [None]
  - VISUAL ACUITY REDUCED [None]
